FAERS Safety Report 10949293 (Version 2)
Quarter: 2015Q2

REPORT INFORMATION
  Report Type: Spontaneous
  Country: FR (occurrence: None)
  Receive Date: 20150320
  Receipt Date: 20150406
  Transmission Date: 20150821
  Serious: Yes (Other)
  Sender: FDA-Public Use
  Company Number: FR2015GSK035081

PATIENT
  Sex: Male

DRUGS (4)
  1. TIVICAY [Suspect]
     Active Substance: DOLUTEGRAVIR SODIUM
     Indication: HIV INFECTION
     Dosage: 1D
     Route: 048
     Dates: start: 201412
  2. RITONAVIR (RITONAVIR) [Concomitant]
     Active Substance: RITONAVIR
  3. RILPIVIRINE [Suspect]
     Active Substance: RILPIVIRINE
     Indication: PRODUCT USED FOR UNKNOWN INDICATION
     Dates: start: 201412
  4. DARUNAVIR (DARUNAVIR) [Concomitant]
     Active Substance: DARUNAVIR

REACTIONS (4)
  - Weight decreased [None]
  - Fatigue [None]
  - Cholestasis [None]
  - Hepatocellular injury [None]

NARRATIVE: CASE EVENT DATE: 2015
